FAERS Safety Report 12267389 (Version 1)
Quarter: 2016Q2

REPORT INFORMATION
  Report Type: Spontaneous
  Country: GB (occurrence: GB)
  Receive Date: 20160414
  Receipt Date: 20160414
  Transmission Date: 20160815
  Serious: Yes (Hospitalization)
  Sender: FDA-Public Use
  Company Number: GB-WATSON-2016-07542

PATIENT
  Age: 44 Year
  Sex: Male
  Weight: 82 kg

DRUGS (9)
  1. OLANZAPINE (UNKNOWN) [Suspect]
     Active Substance: OLANZAPINE
     Indication: HYPOMANIA
     Dosage: 10 MG, QHS
     Route: 048
     Dates: start: 20160217
  2. ASPIRIN. [Concomitant]
     Active Substance: ASPIRIN
     Indication: PRODUCT USED FOR UNKNOWN INDICATION
     Dosage: UNK
     Route: 065
  3. REDOXON MULTIVITAMIN 1 [Concomitant]
     Indication: PRODUCT USED FOR UNKNOWN INDICATION
     Dosage: UNK
     Route: 065
  4. CLONAZEPAM. [Suspect]
     Active Substance: CLONAZEPAM
     Indication: AGITATION
     Dosage: 4 MG, DAILY (IN FOUR DOSES)
     Route: 048
     Dates: start: 20160217
  5. FLUCLOXACILLIN [Concomitant]
     Active Substance: FLUCLOXACILLIN
     Indication: PRODUCT USED FOR UNKNOWN INDICATION
     Dosage: UNK
     Route: 065
     Dates: start: 20160401
  6. PROMETHAZINE [Suspect]
     Active Substance: PROMETHAZINE\PROMETHAZINE HYDROCHLORIDE
     Indication: PRODUCT USED FOR UNKNOWN INDICATION
     Dosage: UNK
     Route: 048
     Dates: start: 20160217
  7. PHENERGAN [Suspect]
     Active Substance: PROMETHAZINE HYDROCHLORIDE
     Indication: AGITATION
     Dosage: UNK UNK, DAILY (UNSURE, PERHAPS 25MG DAILY)
     Route: 048
     Dates: start: 20160217
  8. INNOHEP [Concomitant]
     Active Substance: TINZAPARIN SODIUM
     Indication: PRODUCT USED FOR UNKNOWN INDICATION
     Dosage: UNK
     Route: 065
  9. EPILIM [Suspect]
     Active Substance: VALPROATE SODIUM
     Indication: HYPOMANIA
     Dosage: UNK UNK, DAILY (UNSURE BUT MAYBE IN THE RANGE OF 0.5-1G DAILY)
     Route: 048
     Dates: start: 20160217

REACTIONS (12)
  - Localised infection [Unknown]
  - Oedema peripheral [Unknown]
  - Liver injury [Not Recovered/Not Resolved]
  - Pruritus [Unknown]
  - Verbal abuse [Not Recovered/Not Resolved]
  - Breathing-related sleep disorder [Unknown]
  - Rash maculo-papular [Unknown]
  - Drug hypersensitivity [Not Recovered/Not Resolved]
  - Cerebrovascular accident [Unknown]
  - Reaction to drug excipients [Unknown]
  - Aggression [Not Recovered/Not Resolved]
  - Drug interaction [Unknown]

NARRATIVE: CASE EVENT DATE: 20160217
